FAERS Safety Report 7900751-8 (Version None)
Quarter: 2011Q4

REPORT INFORMATION
  Report Type: 
  Country: None (occurrence: None)
  Receive Date: 20111108
  Receipt Date: 20111031
  Transmission Date: 20120403
  Serious: Yes (Life-Threatening, Hospitalization)
  Sender: FDA-Public Use
  Company Number: NO-TEVA-307297ISR

PATIENT
  Sex: Female

DRUGS (3)
  1. OXALIPLATIN [Suspect]
     Indication: COLON CANCER STAGE III
     Dosage: 170 MG - 160 MG
     Dates: start: 20110113, end: 20110622
  2. FLUOROURACIL [Concomitant]
     Indication: COLON CANCER STAGE III
     Dosage: 995 MG - 950 MG
  3. LEUCOVORIN CALCIUM [Concomitant]

REACTIONS (3)
  - ACUTE RESPIRATORY FAILURE [None]
  - HYPOXIA [None]
  - COGNITIVE DISORDER [None]
